FAERS Safety Report 20946565 (Version 1)
Quarter: 2022Q2

REPORT INFORMATION
  Report Type: Spontaneous
  Country: US (occurrence: None)
  Receive Date: 20220610
  Receipt Date: 20220610
  Transmission Date: 20220721
  Serious: Yes (Death)
  Sender: FDA-Public Use
  Company Number: None

PATIENT
  Sex: Male
  Weight: 73.0 kg

DRUGS (13)
  1. LENALIDOMIDE [Suspect]
     Active Substance: LENALIDOMIDE
     Indication: Plasma cell myeloma
     Dosage: 15 MG DALY 14ON7 OFF PO?
     Route: 048
  2. AMLODIPINE BESYLATE [Concomitant]
  3. ASPIRIN [Concomitant]
     Active Substance: ASPIRIN
  4. ATORVASTATIN CALCIUM [Concomitant]
  5. CEFDINIR [Concomitant]
  6. FUROSEMIDE [Concomitant]
  7. GABAPENTIN [Concomitant]
  8. HYDRALAZ [Concomitant]
  9. PANTOPRAZOLE SODIUM [Concomitant]
  10. HYDRALAZINE HCI [Concomitant]
  11. QUETIAPINE FUMERATE [Concomitant]
  12. XARELTO [Concomitant]
  13. SERTRALINE HCI [Concomitant]

REACTIONS (1)
  - Death [None]
